FAERS Safety Report 11126635 (Version 1)
Quarter: 2015Q2

REPORT INFORMATION
  Report Type: Spontaneous
  Country: JP (occurrence: JP)
  Receive Date: 20150520
  Receipt Date: 20150520
  Transmission Date: 20150821
  Serious: Yes (Hospitalization)
  Sender: FDA-Public Use
  Company Number: JP-PFIZER INC-2015142574

PATIENT
  Age: 8 Decade
  Sex: Female

DRUGS (2)
  1. LYRICA [Suspect]
     Active Substance: PREGABALIN
     Indication: NERVE INJURY
     Dosage: 75 MG, DAILY BEDTIME
     Route: 048
  2. GLIVEC [Concomitant]
     Active Substance: IMATINIB MESYLATE

REACTIONS (4)
  - Dizziness [Recovered/Resolved]
  - Fracture [Recovered/Resolved]
  - Fall [Unknown]
  - Product use issue [Unknown]

NARRATIVE: CASE EVENT DATE: 20130517
